FAERS Safety Report 8132570-4 (Version None)
Quarter: 2012Q1

REPORT INFORMATION
  Report Type: 
  Country: None (occurrence: None)
  Receive Date: 20120213
  Receipt Date: 20120208
  Transmission Date: 20120608
  Serious: No
  Sender: FDA-Public Use
  Company Number: US-PFIZER INC-2007020559

PATIENT
  Sex: Female
  Weight: 38.549 kg

DRUGS (10)
  1. AMBIEN [Concomitant]
     Indication: SLEEP DISORDER
     Dosage: DAILY
  2. ASCORBIC ACID [Concomitant]
     Indication: MYALGIA
  3. GENOTROPIN [Suspect]
     Indication: HYPOPITUITARISM
     Dosage: UNK
  4. SYNTHROID [Concomitant]
     Dosage: UNK
  5. CALCIUM [Concomitant]
     Indication: MYALGIA
  6. VITAMIN E [Concomitant]
     Indication: ARTHRALGIA
     Dosage: UNK
  7. PREMPRO [Concomitant]
     Dosage: UNK
  8. ASCORBIC ACID [Concomitant]
     Indication: ARTHRALGIA
     Dosage: UNK
  9. CALCIUM [Concomitant]
     Indication: ARTHRALGIA
     Dosage: UNK
  10. VITAMIN E [Concomitant]
     Indication: MYALGIA

REACTIONS (3)
  - OEDEMA [None]
  - FATIGUE [None]
  - HYPERTENSION [None]
